FAERS Safety Report 25339894 (Version 1)
Quarter: 2025Q2

REPORT INFORMATION
  Report Type: Spontaneous
  Country: CN (occurrence: CN)
  Receive Date: 20250521
  Receipt Date: 20250521
  Transmission Date: 20250716
  Serious: Yes (Life-Threatening, Hospitalization)
  Sender: ACCORD
  Company Number: None

PATIENT
  Age: 62 Year
  Sex: Male
  Weight: 63 kg

DRUGS (3)
  1. CARBOPLATIN [Suspect]
     Active Substance: CARBOPLATIN
     Indication: Lung neoplasm malignant
     Dosage: 500 MILLIGRAM, Q3W, IV DRIP
     Dates: start: 20240821, end: 20241110
  2. ETOPOSIDE [Suspect]
     Active Substance: ETOPOSIDE
     Indication: Lung neoplasm malignant
     Dosage: 0.1 GRAM, Q3W, DAY 1 (D1) TO D5, IV DRIP
     Dates: start: 20240821, end: 20241110
  3. SERPLULIMAB [Suspect]
     Active Substance: SERPLULIMAB
     Indication: Lung neoplasm malignant
     Dosage: 300 MILLIGRAM, Q3W, IV DRIP
     Dates: start: 20240821, end: 20250304

REACTIONS (1)
  - Immune-mediated lung disease [Recovering/Resolving]

NARRATIVE: CASE EVENT DATE: 20250324
